FAERS Safety Report 7950537-3 (Version None)
Quarter: 2011Q4

REPORT INFORMATION
  Report Type: 
  Country: None (occurrence: None)
  Receive Date: 20111130
  Receipt Date: 20111122
  Transmission Date: 20120403
  Serious: Yes (Other)
  Sender: FDA-Public Use
  Company Number: PHHY2011US102369

PATIENT
  Age: 21 Year
  Sex: Female

DRUGS (3)
  1. TOPIRAMATE [Suspect]
     Dosage: UNK
     Dates: end: 20110206
  2. TOPIRAMATE [Suspect]
     Dosage: 100 MG IN THE MORNING AND 150 MG AT BEDTIME.
     Dates: end: 20110101
  3. TOPIRAMATE [Suspect]
     Indication: SYNCOPE
     Dosage: 100 MG, BID
     Dates: start: 20100501

REACTIONS (2)
  - ABNORMAL BEHAVIOUR [None]
  - DISSOCIATIVE DISORDER [None]
